FAERS Safety Report 23778278 (Version 1)
Quarter: 2024Q2

REPORT INFORMATION
  Report Type: Spontaneous
  Country: CH (occurrence: CH)
  Receive Date: 20240424
  Receipt Date: 20240424
  Transmission Date: 20240715
  Serious: Yes (Other)
  Sender: FDA-Public Use
  Company Number: None

PATIENT
  Age: 76 Year
  Sex: Male
  Weight: 63.9 kg

DRUGS (11)
  1. PRIVIGEN [Suspect]
     Active Substance: HUMAN IMMUNOGLOBULIN G
     Indication: Secondary immunodeficiency
     Dosage: IN TOTAL
     Route: 042
     Dates: start: 20240329, end: 20240329
  2. DAFALGAN [Concomitant]
     Active Substance: ACETAMINOPHEN
     Dosage: 500 MG, EVERY 6H
     Route: 065
  3. MORPHINE SULFATE [Concomitant]
     Active Substance: MORPHINE SULFATE
     Dosage: 10 MG, Q12H
  4. Novalgin [Concomitant]
     Dosage: UNK, PRN
  5. PIPERACILLIN AND TAZOBACTAM [Concomitant]
     Active Substance: PIPERACILLIN SODIUM\TAZOBACTAM SODIUM
     Dosage: 4.5 G Q6H
  6. PANTOPRAZOLE [Concomitant]
     Active Substance: PANTOPRAZOLE
     Dosage: 20 MG,
  7. ACETYLCYSTEINE\CHLORPHENIRAMINE MALEATE [Concomitant]
     Active Substance: ACETYLCYSTEINE\CHLORPHENIRAMINE MALEATE
     Dosage: 15 ML, Q6H
  8. BUDESONIDE\FORMOTEROL\GLYCOPYRRONIUM [Concomitant]
     Active Substance: BUDESONIDE\FORMOTEROL\GLYCOPYRRONIUM
     Dosage: Q12H
  9. ENOXAPARIN SODIUM [Concomitant]
     Active Substance: ENOXAPARIN SODIUM
     Dosage: 40 MG, QD
  10. CODEINE PHOSPHATE\GUAIFENESIN [Concomitant]
     Active Substance: CODEINE PHOSPHATE\GUAIFENESIN
     Dosage: 30 DROPS Q8H
  11. IMBRUVICA [Concomitant]
     Active Substance: IBRUTINIB
     Dosage: AKTUELL PAUSIEREND

REACTIONS (4)
  - Chills [Recovered/Resolved]
  - Oxygen saturation decreased [Recovered/Resolved]
  - Hypertension [Recovered/Resolved]
  - Tachycardia [Recovered/Resolved]

NARRATIVE: CASE EVENT DATE: 20240329
